FAERS Safety Report 14577927 (Version 1)
Quarter: 2018Q1

REPORT INFORMATION
  Report Type: Spontaneous
  Country: ZA (occurrence: ZA)
  Receive Date: 20180227
  Receipt Date: 20180227
  Transmission Date: 20180509
  Serious: Yes (Hospitalization)
  Sender: FDA-Public Use
  Company Number: ZA-PFIZER INC-2018078131

PATIENT
  Age: 70 Year
  Sex: Female

DRUGS (5)
  1. CELEBREX [Suspect]
     Active Substance: CELECOXIB
     Dosage: 200 MG, UNK
  2. ALTOSEC /00661201/ [Suspect]
     Active Substance: OMEPRAZOLE
     Dosage: 20 MG, UNK
  3. ULTAK [Suspect]
     Active Substance: RANITIDINE HYDROCHLORIDE
     Dosage: 300 MG, UNK
  4. URBANOL [Suspect]
     Active Substance: CLOBAZAM
     Dosage: 10 MG, UNK
  5. UNAT /01036501/ [Suspect]
     Active Substance: TORSEMIDE
     Dosage: 10 MG, UNK

REACTIONS (1)
  - Arthritis [Unknown]
